FAERS Safety Report 7203788-X (Version None)
Quarter: 2010Q4

REPORT INFORMATION
  Report Type: 
  Country: None (occurrence: None)
  Receive Date: 20101230
  Receipt Date: 20101227
  Transmission Date: 20110411
  Serious: Yes (Death)
  Sender: FDA-Public Use
  Company Number: PHEH2006US10137

PATIENT
  Sex: Male

DRUGS (2)
  1. EXJADE [Suspect]
     Indication: HYPERTENSION
     Dosage: 1750 MG, QD
     Route: 048
     Dates: start: 20060101
  2. EXJADE [Suspect]
     Dosage: 250 MG, UNK

REACTIONS (4)
  - ABDOMINAL DISTENSION [None]
  - DEATH [None]
  - DYSPEPSIA [None]
  - NAUSEA [None]
